FAERS Safety Report 16880505 (Version 1)
Quarter: 2019Q4

REPORT INFORMATION
  Report Type: Other
  Country: DE (occurrence: DE)
  Receive Date: 20191003
  Receipt Date: 20191003
  Transmission Date: 20200122
  Serious: Yes (Hospitalization, Other)
  Sender: FDA-Public Use
  Company Number: DE-MACLEODS PHARMACEUTICALS US LTD-MAC2019023087

PATIENT

DRUGS (7)
  1. RAMIPRIL. [Concomitant]
     Active Substance: RAMIPRIL
     Indication: PRODUCT USED FOR UNKNOWN INDICATION
     Dosage: 2.5 MILLIGRAM, QD, RECORDING MEDICATION, NOT PAUSED
     Route: 048
  2. HALOPERIDOL RATIOPHARM [Interacting]
     Active Substance: HALOPERIDOL
     Indication: SCHIZOAFFECTIVE DISORDER
     Dosage: 10 MILLIGRAM, BID (1-0-1)
     Route: 048
     Dates: start: 20190819, end: 20190826
  3. ESCITALOPRAM [Suspect]
     Active Substance: ESCITALOPRAM OXALATE
     Indication: SCHIZOPHRENIA
     Dosage: 10 MILLIGRAM, PERMANENT INTAKE
     Route: 048
  4. CHLORPROTHIXEN NEURAXPHARM [Interacting]
     Active Substance: CHLORPROTHIXENE HYDROCHLORIDE
     Indication: SCHIZOAFFECTIVE DISORDER
     Dosage: UNK, 30-30-30-100
     Route: 048
     Dates: start: 20190820, end: 20190826
  5. ARIPIPRAZOL STADA [Interacting]
     Active Substance: ARIPIPRAZOLE
     Indication: SCHIZOAFFECTIVE DISORDER
     Dosage: 10 MILLIGRAM, QD (1-0-0), RECORDING MEDICATION- 26 08 2019
     Route: 048
  6. BISOPROLOL [Concomitant]
     Active Substance: BISOPROLOL
     Indication: MITRAL VALVE INCOMPETENCE
     Dosage: 2.5 MILLIGRAM, QD (1-0-0), RECORDING MEDICATION, NOT PAUSED
     Route: 048
  7. DIAZEPAM-RATIOPHARM [Concomitant]
     Indication: TENSION
     Dosage: 10 MILLIGRAM, TID (1-1-1)
     Route: 048
     Dates: start: 20190822, end: 20190826

REACTIONS (13)
  - Drug interaction [Unknown]
  - Neuroleptic malignant syndrome [Not Recovered/Not Resolved]
  - Hypokinesia [Not Recovered/Not Resolved]
  - Anticholinergic syndrome [Not Recovered/Not Resolved]
  - Blood pressure increased [Not Recovered/Not Resolved]
  - Hyperthermia [Not Recovered/Not Resolved]
  - Dehydration [Not Recovered/Not Resolved]
  - Transaminases increased [Not Recovered/Not Resolved]
  - Blood creatine phosphokinase increased [Not Recovered/Not Resolved]
  - Tachypnoea [Not Recovered/Not Resolved]
  - Tachycardia [Not Recovered/Not Resolved]
  - Muscle rigidity [Not Recovered/Not Resolved]
  - Serotonin syndrome [Not Recovered/Not Resolved]

NARRATIVE: CASE EVENT DATE: 20190826
